FAERS Safety Report 6260837-3 (Version None)
Quarter: 2009Q3

REPORT INFORMATION
  Report Type: 
  Country: None (occurrence: None)
  Receive Date: 20090707
  Receipt Date: 20090623
  Transmission Date: 20100115
  Serious: Yes (Death)
  Sender: FDA-Public Use
  Company Number: 2009001878

PATIENT
  Age: 65 Year
  Sex: Male

DRUGS (3)
  1. TARCEVA [Suspect]
     Indication: NON-SMALL CELL LUNG CANCER
     Dosage: (150 MG, QD), ORAL
     Route: 048
     Dates: start: 20090613, end: 20090614
  2. MANNITOL [Concomitant]
  3. AMINO ACIDS (AMINO ACIDS) [Concomitant]

REACTIONS (2)
  - DYSPNOEA [None]
  - RESPIRATORY FAILURE [None]
